FAERS Safety Report 18092203 (Version 1)
Quarter: 2020Q3

REPORT INFORMATION
  Report Type: Spontaneous
  Country: US (occurrence: US)
  Receive Date: 20200730
  Receipt Date: 20200730
  Transmission Date: 20201103
  Serious: Yes (Other)
  Sender: FDA-Public Use
  Company Number: None

PATIENT
  Age: 41 Year
  Sex: Male
  Weight: 79 kg

DRUGS (1)
  1. INFLIXIMAB ?ABDA (INFLIXIMAB?ABDA 100MG/VIL INJ.LYPHL [Suspect]
     Active Substance: INFLIXIMAB-ABDA
     Indication: CROHN^S DISEASE
     Dosage: ?          OTHER FREQUENCY:OTHER;?
     Route: 042
     Dates: start: 20190826, end: 20200210

REACTIONS (2)
  - Autoimmune hepatitis [None]
  - Liver function test increased [None]

NARRATIVE: CASE EVENT DATE: 20200210
